FAERS Safety Report 25849903 (Version 1)
Quarter: 2025Q3

REPORT INFORMATION
  Report Type: Spontaneous
  Country: CA (occurrence: CA)
  Receive Date: 20250926
  Receipt Date: 20250926
  Transmission Date: 20251021
  Serious: Yes (Other)
  Sender: ACCORD
  Company Number: None

PATIENT
  Age: 4 Year
  Sex: Female
  Weight: 55 kg

DRUGS (3)
  1. METHOTREXATE [Suspect]
     Active Substance: METHOTREXATE
     Indication: Juvenile idiopathic arthritis
     Route: 058
  2. NAPROXEN [Concomitant]
     Active Substance: NAPROXEN
     Route: 048
  3. PREDNISONE [Concomitant]
     Active Substance: PREDNISONE
     Route: 048

REACTIONS (3)
  - Uveitis [Unknown]
  - Liver function test increased [Unknown]
  - Off label use [Unknown]
